FAERS Safety Report 9449141 (Version 1)
Quarter: 2013Q3

REPORT INFORMATION
  Report Type: Spontaneous
  Country: US (occurrence: None)
  Receive Date: 20130806
  Receipt Date: 20130806
  Transmission Date: 20140515
  Serious: Yes (Life-Threatening)
  Sender: FDA-Public Use
  Company Number: 2013US002194

PATIENT
  Age: 23 Year
  Sex: Male

DRUGS (2)
  1. ICLUSIG [Suspect]
     Route: 048
  2. ALLOPURINOL (ALLOPURINOL) TABLET [Concomitant]

REACTIONS (5)
  - Respiratory failure [None]
  - Candida test positive [None]
  - Human rhinovirus test positive [None]
  - Pulmonary oedema [None]
  - Pneumonia [None]
